FAERS Safety Report 13150653 (Version 1)
Quarter: 2017Q1

REPORT INFORMATION
  Report Type: Spontaneous
  Country: US (occurrence: US)
  Receive Date: 20170125
  Receipt Date: 20170125
  Transmission Date: 20170428
  Serious: Yes (Congenital Anomaly, Other)
  Sender: FDA-Public Use
  Company Number: US-FRESENIUS KABI-FK201700751

PATIENT
  Sex: Male

DRUGS (1)
  1. METHOTREXATE (MANUFACTURER UNKNOWN) [Suspect]
     Active Substance: METHOTREXATE
     Indication: ECTOPIC PREGNANCY
     Route: 064

REACTIONS (4)
  - Meningomyelocele [Unknown]
  - Arnold-Chiari malformation [Unknown]
  - Foetal methotrexate syndrome [Unknown]
  - Foetal exposure during pregnancy [Unknown]
